FAERS Safety Report 25098491 (Version 1)
Quarter: 2025Q1

REPORT INFORMATION
  Report Type: Spontaneous
  Country: GB (occurrence: GB)
  Receive Date: 20250320
  Receipt Date: 20250320
  Transmission Date: 20250409
  Serious: Yes (Other)
  Sender: ADVANZ PHARMA
  Company Number: None

PATIENT

DRUGS (1)
  1. PREDNISOLONE [Suspect]
     Active Substance: PREDNISOLONE
     Indication: Cough
     Dates: start: 20250307

REACTIONS (1)
  - Psychomotor hyperactivity [Not Recovered/Not Resolved]

NARRATIVE: CASE EVENT DATE: 20250307
